FAERS Safety Report 23206704 (Version 1)
Quarter: 2023Q4

REPORT INFORMATION
  Report Type: Spontaneous
  Country: CA (occurrence: CA)
  Receive Date: 20231120
  Receipt Date: 20231120
  Transmission Date: 20240109
  Serious: Yes (Hospitalization)
  Sender: FDA-Public Use
  Company Number: CA-TEVA-2023-CA-2947794

PATIENT
  Age: 4 Year
  Sex: Male
  Weight: 21 kg

DRUGS (2)
  1. AMOXICILLIN [Suspect]
     Active Substance: AMOXICILLIN
     Indication: Otitis media
     Dosage: 2000 MILLIGRAM DAILY;
     Route: 048
  2. OMEGA-3 ACIDS [Concomitant]
     Active Substance: OMEGA-3 FATTY ACIDS
     Indication: Product used for unknown indication
     Route: 065

REACTIONS (6)
  - Gait inability [Recovered/Resolved]
  - Lip swelling [Recovered/Resolved]
  - Pain in extremity [Recovered/Resolved]
  - Peripheral swelling [Recovered/Resolved]
  - Pyrexia [Recovered/Resolved]
  - Urticaria [Recovered/Resolved]
